FAERS Safety Report 7324855-6 (Version None)
Quarter: 2011Q1

REPORT INFORMATION
  Report Type: 
  Country: None (occurrence: None)
  Receive Date: 20110301
  Receipt Date: 20110228
  Transmission Date: 20110831
  Serious: Yes (Death)
  Sender: FDA-Public Use
  Company Number: HR-ABBOTT-10P-216-0694301-00

PATIENT
  Sex: Male
  Weight: 70 kg

DRUGS (8)
  1. CARVELOL [Concomitant]
     Indication: ARRHYTHMIA
  2. PREDUCTAL MR [Concomitant]
     Indication: PROPHYLAXIS
  3. ZEMPLAR [Suspect]
     Indication: HYPERPARATHYROIDISM SECONDARY
     Dosage: 1 AMPOULE OF 5MCG PER DIALYSIS, 3 X WEEK
     Route: 042
     Dates: start: 20091101
  4. VENOFER [Concomitant]
     Indication: ANAEMIA
  5. PREDUCTAL MR [Concomitant]
     Indication: CORONARY ARTERY DISEASE
  6. CARDIOPIRIN [Concomitant]
     Indication: THROMBOSIS PROPHYLAXIS
  7. MIRCERA [Concomitant]
     Indication: ANAEMIA
  8. RENAGEL [Concomitant]
     Indication: HYPERPHOSPHATAEMIA
     Dosage: 4 TABS OF 800MG, 3 IN 1 DAY
     Route: 048

REACTIONS (1)
  - DEATH [None]
